FAERS Safety Report 9689382 (Version 1)
Quarter: 2013Q4

REPORT INFORMATION
  Report Type: Spontaneous
  Country: CH (occurrence: CH)
  Receive Date: 20131114
  Receipt Date: 20131114
  Transmission Date: 20140711
  Serious: Yes (Hospitalization)
  Sender: FDA-Public Use
  Company Number: CH-ASTRAZENECA-2013SE82785

PATIENT
  Sex: Female

DRUGS (2)
  1. BRILIQUE [Suspect]
     Route: 048
  2. REOPRO [Concomitant]

REACTIONS (1)
  - Thrombosis in device [Unknown]
